FAERS Safety Report 4759485-3 (Version None)
Quarter: 2005Q3

REPORT INFORMATION
  Report Type: 
  Country: None (occurrence: None)
  Receive Date: 20050831
  Receipt Date: 20050816
  Transmission Date: 20060218
  Serious: Yes (Hospitalization)
  Sender: FDA-Public Use
  Company Number: US015823

PATIENT
  Age: 21 Year
  Sex: Male

DRUGS (3)
  1. ACTIQ [Suspect]
     Indication: PAIN
     Dates: start: 20040101
  2. ACTIQ [Suspect]
     Indication: PAIN
     Dosage: 800 UG BID BUCCAL
     Route: 002
     Dates: start: 20050101
  3. DURAGESIC-100 [Concomitant]

REACTIONS (3)
  - DEPRESSION [None]
  - DRUG DEPENDENCE [None]
  - INTENTIONAL SELF-INJURY [None]
